FAERS Safety Report 6068368-0 (Version None)
Quarter: 2009Q1

REPORT INFORMATION
  Report Type: 
  Country: None (occurrence: None)
  Receive Date: 20090206
  Receipt Date: 20090129
  Transmission Date: 20090719
  Serious: Yes (Other)
  Sender: FDA-Public Use
  Company Number: PHHO2009IT01583

PATIENT
  Sex: Female
  Weight: 57 kg

DRUGS (1)
  1. TASIGNA [Suspect]
     Dosage: 400MG DAILY
     Route: 048
     Dates: start: 20080506

REACTIONS (1)
  - ARTERIAL DISORDER [None]
